FAERS Safety Report 9830033 (Version 2)
Quarter: 2014Q1

REPORT INFORMATION
  Report Type: Spontaneous
  Country: US (occurrence: US)
  Receive Date: 20140120
  Receipt Date: 20140124
  Transmission Date: 20141002
  Serious: Yes (Hospitalization)
  Sender: FDA-Public Use
  Company Number: US-BAYER-2014-005969

PATIENT
  Age: 70 Year
  Sex: Female
  Weight: 57 kg

DRUGS (2)
  1. BAYER GENUINE ASPIRIN ORIGINAL STRENGTH [Suspect]
     Indication: INFLAMMATION
     Dosage: 1 DF, QD
     Route: 048
     Dates: start: 1995, end: 20131214
  2. MELOXICAM [Concomitant]

REACTIONS (7)
  - Colitis [Not Recovered/Not Resolved]
  - Incorrect drug administration duration [None]
  - Off label use [None]
  - Abdominal pain upper [Not Recovered/Not Resolved]
  - Malaise [None]
  - Diarrhoea [None]
  - Rectal haemorrhage [Recovered/Resolved]
